FAERS Safety Report 8250389-0 (Version None)
Quarter: 2012Q1

REPORT INFORMATION
  Report Type: 
  Country: None (occurrence: None)
  Receive Date: 20120328
  Receipt Date: 20120316
  Transmission Date: 20120608
  Serious: Yes (Hospitalization)
  Sender: FDA-Public Use
  Company Number: 2012MA003760

PATIENT
  Age: 21 Year
  Sex: Female

DRUGS (1)
  1. FEVERALL [Suspect]
     Indication: INTENTIONAL SELF-INJURY
     Dosage: 7 G;X1;PO
     Route: 048
     Dates: start: 20090319, end: 20090319

REACTIONS (7)
  - PRESYNCOPE [None]
  - OVERDOSE [None]
  - HYPOTENSION [None]
  - INTENTIONAL SELF-INJURY [None]
  - VOMITING [None]
  - TOXICITY TO VARIOUS AGENTS [None]
  - NAUSEA [None]
